FAERS Safety Report 7259467-6 (Version None)
Quarter: 2011Q1

REPORT INFORMATION
  Report Type: 
  Country: None (occurrence: None)
  Receive Date: 20110129
  Receipt Date: 20100827
  Transmission Date: 20110831
  Serious: No
  Sender: FDA-Public Use
  Company Number: US-ABBOTT-10P-163-0666657-00

PATIENT
  Age: 25 Year
  Sex: Female

DRUGS (5)
  1. IMURAN [Concomitant]
     Indication: PRODUCT USED FOR UNKNOWN INDICATION
  2. FOLIC ACID [Concomitant]
     Indication: PRODUCT USED FOR UNKNOWN INDICATION
  3. NORCO [Concomitant]
     Indication: PRODUCT USED FOR UNKNOWN INDICATION
  4. PHENERGAN [Concomitant]
     Indication: PRODUCT USED FOR UNKNOWN INDICATION
  5. HUMIRA [Suspect]
     Indication: CROHN'S DISEASE

REACTIONS (2)
  - OEDEMA PERIPHERAL [None]
  - JOINT STIFFNESS [None]
